FAERS Safety Report 22358406 (Version 2)
Quarter: 2023Q2

REPORT INFORMATION
  Report Type: Spontaneous
  Country: CN (occurrence: CN)
  Receive Date: 20230524
  Receipt Date: 20230529
  Transmission Date: 20230722
  Serious: Yes (Hospitalization)
  Sender: FDA-Public Use
  Company Number: CN-002147023-NVSC2023CN115836

PATIENT
  Age: 73 Year
  Sex: Female

DRUGS (1)
  1. CERITINIB [Suspect]
     Active Substance: CERITINIB
     Indication: Lung neoplasm malignant
     Dosage: 450 MG, QD
     Route: 048
     Dates: start: 20220307, end: 20230316

REACTIONS (6)
  - Drug eruption [Recovering/Resolving]
  - Rash [Recovering/Resolving]
  - Pustule [Unknown]
  - Scab [Unknown]
  - Pain [Unknown]
  - Pruritus [Recovering/Resolving]

NARRATIVE: CASE EVENT DATE: 20230101
